FAERS Safety Report 10243880 (Version 1)
Quarter: 2014Q2

REPORT INFORMATION
  Report Type: Spontaneous
  Country: GB (occurrence: GB)
  Receive Date: 20140618
  Receipt Date: 20140618
  Transmission Date: 20141212
  Serious: Yes (Disabling)
  Sender: FDA-Public Use
  Company Number: GB-ELI_LILLY_AND_COMPANY-GB201406002020

PATIENT
  Age: 83 Year
  Sex: Male
  Weight: 88 kg

DRUGS (10)
  1. DULOXETINE HYDROCHLORIDE [Suspect]
     Indication: PRODUCT USED FOR UNKNOWN INDICATION
     Dosage: UNK
     Route: 065
     Dates: start: 20140521
  2. ASPIRIN [Concomitant]
     Dosage: UNK
     Dates: start: 20140128
  3. CLARITHROMYCIN [Concomitant]
     Dosage: UNK
     Dates: start: 20140425
  4. DOXYCYCLINE [Concomitant]
     Dosage: UNK
     Dates: start: 20140225, end: 20140304
  5. FLUCLOXACILLIN [Concomitant]
     Dosage: UNK
     Dates: start: 20140416, end: 20140423
  6. LEVOTHYROXINE [Concomitant]
     Dosage: UNK
     Dates: start: 20140128
  7. METFORMIN [Concomitant]
     Dosage: UNK
     Dates: start: 20140128
  8. NAPROXEN [Concomitant]
     Dosage: UNK
     Dates: start: 20140416, end: 20140430
  9. PERINDOPRIL ERBUMINE [Concomitant]
     Dosage: UNK
     Dates: start: 20140128
  10. SIMVASTATIN [Concomitant]
     Dosage: UNK
     Dates: start: 20140128

REACTIONS (2)
  - Social avoidant behaviour [Recovering/Resolving]
  - Fatigue [Recovering/Resolving]
